FAERS Safety Report 8825923 (Version 1)
Quarter: 2012Q4

REPORT INFORMATION
  Report Type: 
  Country: GB (occurrence: IT)
  Receive Date: 20121005
  Receipt Date: 20121005
  Transmission Date: 20130627
  Serious: Yes (Hospitalization)
  Sender: FDA-Public Use
  Company Number: IT-BRISTOL-MYERS SQUIBB COMPANY-16998494

PATIENT
  Age: 69 Year
  Sex: Male

DRUGS (4)
  1. REYATAZ [Suspect]
     Indication: HIV INFECTION
     Route: 048
     Dates: start: 20091022, end: 20120913
  2. TRUVADA [Suspect]
     Indication: HEPATITIS B
     Route: 048
     Dates: start: 20091022, end: 20120913
  3. NORVIR [Suspect]
     Indication: HIV INFECTION
     Route: 048
     Dates: start: 20091022, end: 20120913
  4. RAMIPRIL [Concomitant]

REACTIONS (1)
  - Renal failure acute [Not Recovered/Not Resolved]
